FAERS Safety Report 4492037-1 (Version None)
Quarter: 2004Q4

REPORT INFORMATION
  Report Type: 
  Country: None (occurrence: None)
  Receive Date: 20041029
  Receipt Date: 20041025
  Transmission Date: 20050328
  Serious: Yes (Hospitalization)
  Sender: FDA-Public Use
  Company Number: HQWYE241523SEP04

PATIENT
  Age: 47 Year
  Sex: Male

DRUGS (1)
  1. RHINADVIL (IBUPROFEN/PSEUDOEPHEDRINE, TABLET) [Suspect]
     Dosage: ONE TABLET
     Route: 048
     Dates: start: 20030316, end: 20030316

REACTIONS (6)
  - DISCOMFORT [None]
  - OEDEMA [None]
  - PAINFUL RESPIRATION [None]
  - PRURITUS [None]
  - RESPIRATORY DISORDER [None]
  - URTICARIA [None]
